FAERS Safety Report 9519314 (Version 1)
Quarter: 2013Q3

REPORT INFORMATION
  Report Type: Spontaneous
  Country: FI (occurrence: FI)
  Receive Date: 20130912
  Receipt Date: 20130912
  Transmission Date: 20140515
  Serious: Yes (Other)
  Sender: FDA-Public Use
  Company Number: FI-ASTRAZENECA-2013SE67306

PATIENT
  Sex: 0

DRUGS (2)
  1. PROPOFOL [Suspect]
     Route: 042
  2. REMIFENTANIL [Suspect]

REACTIONS (1)
  - Respiratory depression [Unknown]
